FAERS Safety Report 8487237-X (Version None)
Quarter: 2012Q3

REPORT INFORMATION
  Report Type: 
  Country: None (occurrence: None)
  Receive Date: 20120705
  Receipt Date: 20120620
  Transmission Date: 20120928
  Serious: Yes (Other)
  Sender: FDA-Public Use
  Company Number: BR-AMGEN-BRASP2012026265

PATIENT
  Age: 48 Year
  Sex: Male
  Weight: 104 kg

DRUGS (8)
  1. LYRICA [Concomitant]
     Dosage: UNK
  2. DIABINESE [Concomitant]
     Dosage: UNK
  3. ENBREL [Suspect]
     Indication: RHEUMATOID ARTHRITIS
     Dosage: 50 MG, ONCE WEEKLY
     Route: 058
     Dates: start: 20120101
  4. INSULIN [Concomitant]
     Dosage: UNK
  5. PARATRAM [Concomitant]
     Indication: ARTHRALGIA
     Dosage: 20 MG, 1X/DAY
  6. ENBREL [Suspect]
     Indication: PSORIATIC ARTHROPATHY
     Dosage: 50 MG, ONCE WEEKLY
     Route: 058
     Dates: start: 20110214
  7. ENBREL [Suspect]
     Dosage: UNK
  8. PARATRAM [Concomitant]

REACTIONS (2)
  - METABOLIC SYNDROME [None]
  - OBESITY [None]
